FAERS Safety Report 12787877 (Version 1)
Quarter: 2016Q3

REPORT INFORMATION
  Report Type: Spontaneous
  Country: IR (occurrence: IR)
  Receive Date: 20160928
  Receipt Date: 20160928
  Transmission Date: 20161109
  Serious: No
  Sender: FDA-Public Use
  Company Number: IR-TOLMAR, INC.-2016IR001327

PATIENT
  Age: 77 Year
  Sex: Male
  Weight: 59 kg

DRUGS (10)
  1. ELIGARD [Suspect]
     Active Substance: LEUPROLIDE ACETATE
     Dosage: 7.5 MG, UNK, 3 COURSES
     Route: 065
     Dates: start: 201503
  2. DIPIRIDAMOL [Concomitant]
     Route: 065
  3. ELIGARD [Suspect]
     Active Substance: LEUPROLIDE ACETATE
     Dosage: 7.5 MG, UNK, 8 COURSES
     Route: 065
     Dates: start: 2015
  4. ATORVASTATIN [Concomitant]
     Active Substance: ATORVASTATIN
     Route: 065
  5. PREGABALIN. [Concomitant]
     Active Substance: PREGABALIN
     Route: 065
  6. ELIGARD [Suspect]
     Active Substance: LEUPROLIDE ACETATE
     Indication: PROSTATE CANCER
     Dosage: 7.5 MG, UNK
     Route: 065
  7. ASA [Concomitant]
     Active Substance: ASPIRIN
     Route: 065
  8. METORAL [Concomitant]
     Route: 065
  9. LOSARTAN H GENERA [Concomitant]
     Route: 065
  10. ELIGARD [Suspect]
     Active Substance: LEUPROLIDE ACETATE
     Dosage: 7.5 MG, UNK
     Route: 065
     Dates: start: 20160112

REACTIONS (1)
  - Central obesity [Unknown]

NARRATIVE: CASE EVENT DATE: 201509
